FAERS Safety Report 21376946 (Version 1)
Quarter: 2022Q3

REPORT INFORMATION
  Report Type: Spontaneous
  Country: ZA (occurrence: ZA)
  Receive Date: 20220926
  Receipt Date: 20220926
  Transmission Date: 20221027
  Serious: Yes (Other)
  Sender: FDA-Public Use
  Company Number: ZA-PFIZER INC-PV202200067836

PATIENT
  Age: 76 Year
  Sex: Female
  Weight: 81 kg

DRUGS (4)
  1. METHOTREXATE SODIUM [Suspect]
     Active Substance: METHOTREXATE SODIUM
     Indication: Rheumatoid arthritis
     Dosage: 20 MG, WEEKLY
     Dates: start: 1990
  2. SALAZOPYRINE [Concomitant]
     Active Substance: SULFASALAZINE
     Indication: Rheumatoid arthritis
     Dosage: 1 G, 2X/DAY
     Dates: start: 1990
  3. ARAVA [Concomitant]
     Active Substance: LEFLUNOMIDE
     Dosage: 20 MG, DAILY
     Dates: start: 2014
  4. CHLOROQUINE [Concomitant]
     Active Substance: CHLOROQUINE
     Dosage: 200 MG, DAILY
     Dates: start: 1990, end: 2006

REACTIONS (10)
  - Cerebrovascular accident [Unknown]
  - Hypothyroidism [Unknown]
  - Diverticulitis [Unknown]
  - Knee arthroplasty [Unknown]
  - Spinal stenosis [Unknown]
  - Osteoporosis [Unknown]
  - Hypertension [Unknown]
  - Dyslipidaemia [Unknown]
  - Gastrooesophageal reflux disease [Unknown]
  - Drug intolerance [Unknown]

NARRATIVE: CASE EVENT DATE: 19900101
